FAERS Safety Report 7600877-2 (Version None)
Quarter: 2011Q3

REPORT INFORMATION
  Report Type: 
  Country: None (occurrence: None)
  Receive Date: 20110711
  Receipt Date: 20101108
  Transmission Date: 20111222
  Serious: No
  Sender: FDA-Public Use
  Company Number: US-MYLANLABS-2010S1020680

PATIENT
  Age: 78 Year
  Sex: Male

DRUGS (8)
  1. GLYBURIDE [Suspect]
     Indication: TYPE 2 DIABETES MELLITUS
     Route: 048
     Dates: end: 20101019
  2. ZOCOR [Concomitant]
     Indication: BLOOD CHOLESTEROL
  3. NOVOLOG [Concomitant]
     Indication: INSULIN-REQUIRING TYPE 2 DIABETES MELLITUS
     Dates: start: 20101001
  4. TOPROL-XL [Concomitant]
  5. CALCITROL /00514701/ [Concomitant]
     Indication: BLOOD CHOLESTEROL
  6. UROTROL /01241602/ [Concomitant]
     Indication: PROSTATE INFECTION
  7. METFORMIN HCL [Suspect]
     Indication: TYPE 2 DIABETES MELLITUS
     Dates: end: 20100821
  8. LANTUS [Concomitant]
     Indication: INSULIN-REQUIRING TYPE 2 DIABETES MELLITUS
     Dosage: 50-60 UNITS

REACTIONS (2)
  - GLOMERULAR FILTRATION RATE DECREASED [None]
  - RENAL IMPAIRMENT [None]
